FAERS Safety Report 14582410 (Version 1)
Quarter: 2018Q1

REPORT INFORMATION
  Report Type: Spontaneous
  Country: US (occurrence: US)
  Receive Date: 20180228
  Receipt Date: 20180228
  Transmission Date: 20180509
  Serious: Yes (Hospitalization, Other)
  Sender: FDA-Public Use
  Company Number: US-SAOL THERAPEUTICS-2018SAO00176

PATIENT
  Age: 17 Year
  Sex: Male
  Weight: 43.9 kg

DRUGS (3)
  1. BACLOFEN. [Suspect]
     Active Substance: BACLOFEN
     Indication: CEREBRAL PALSY
     Dosage: 289.8 ?G, \DAY
     Route: 037
  2. BACLOFEN. [Suspect]
     Active Substance: BACLOFEN
     Indication: MUSCLE SPASTICITY
     Dosage: 500.5 ?G, \DAY
     Route: 037
     Dates: start: 20130111
  3. MIRALAX [Concomitant]
     Active Substance: POLYETHYLENE GLYCOL 3350

REACTIONS (19)
  - Hyperhidrosis [Recovered/Resolved]
  - Muscle atrophy [Unknown]
  - Constipation [Unknown]
  - Agitation [Recovered/Resolved]
  - Device failure [Recovered/Resolved]
  - Tenotomy [Unknown]
  - Snoring [Unknown]
  - Insomnia [Unknown]
  - Complete oral rehabilitation [Unknown]
  - Eye muscle operation [Unknown]
  - Muscle spasticity [Unknown]
  - Inguinal hernia [Recovered/Resolved]
  - Musculoskeletal stiffness [Unknown]
  - Withdrawal syndrome [Recovered/Resolved]
  - Tremor [Recovered/Resolved]
  - Arthralgia [Unknown]
  - Joint dislocation [Unknown]
  - Spinal fusion surgery [Unknown]
  - Myalgia [Unknown]

NARRATIVE: CASE EVENT DATE: 20160505
